FAERS Safety Report 20412810 (Version 1)
Quarter: 2022Q1

REPORT INFORMATION
  Report Type: Spontaneous
  Country: US (occurrence: US)
  Receive Date: 20220201
  Receipt Date: 20220201
  Transmission Date: 20220423
  Serious: Yes (Hospitalization)
  Sender: FDA-Public Use
  Company Number: US-CELGENE-USA-20220107119

PATIENT
  Age: 72 Year
  Sex: Male

DRUGS (7)
  1. REVLIMID [Suspect]
     Active Substance: LENALIDOMIDE
     Indication: Plasma cell myeloma
     Dosage: 25 MILLIGRAM
     Route: 048
     Dates: start: 201901
  2. REVLIMID [Suspect]
     Active Substance: LENALIDOMIDE
     Indication: Hepatitis B
     Dosage: 2.5 MILLIGRAM
     Route: 048
     Dates: start: 201911
  3. REVLIMID [Suspect]
     Active Substance: LENALIDOMIDE
     Indication: Laboratory test abnormal
     Dosage: 10-5 MG
     Route: 048
     Dates: start: 201912
  4. REVLIMID [Suspect]
     Active Substance: LENALIDOMIDE
     Indication: Off label use
     Dosage: 5 MILLIGRAM
     Route: 048
     Dates: start: 202001
  5. REVLIMID [Suspect]
     Active Substance: LENALIDOMIDE
     Dosage: 10 MILLIGRAM
     Route: 048
     Dates: start: 202005
  6. REVLIMID [Suspect]
     Active Substance: LENALIDOMIDE
     Dosage: 5 MILLIGRAM
     Route: 048
     Dates: start: 202012
  7. ENTECAVIR [Concomitant]
     Active Substance: ENTECAVIR
     Indication: Product used for unknown indication
     Route: 065

REACTIONS (1)
  - COVID-19 pneumonia [Unknown]

NARRATIVE: CASE EVENT DATE: 20220121
